FAERS Safety Report 9783081 (Version 1)
Quarter: 2013Q4

REPORT INFORMATION
  Report Type: Spontaneous
  Country: US (occurrence: US)
  Receive Date: 20131226
  Receipt Date: 20131226
  Transmission Date: 20140711
  Serious: No
  Sender: FDA-Public Use
  Company Number: US-ABBVIE-13P-163-1157856-00

PATIENT
  Sex: Female

DRUGS (2)
  1. TEVETEN [Suspect]
     Indication: HYPERTENSION
     Route: 048
     Dates: end: 201309
  2. TEVETEN [Suspect]
     Route: 048
     Dates: start: 201309

REACTIONS (5)
  - Oropharyngeal pain [Not Recovered/Not Resolved]
  - Weight decreased [Not Recovered/Not Resolved]
  - Eating disorder symptom [Not Recovered/Not Resolved]
  - Dysphagia [Unknown]
  - Foaming at mouth [Not Recovered/Not Resolved]
